FAERS Safety Report 8548078-8 (Version None)
Quarter: 2012Q3

REPORT INFORMATION
  Report Type: 
  Country: None (occurrence: None)
  Receive Date: 20120730
  Receipt Date: 20120726
  Transmission Date: 20120928
  Serious: Yes (Death, Hospitalization, Other)
  Sender: FDA-Public Use
  Company Number: US-ASTRAZENECA-2007UW25889

PATIENT
  Age: 12429 Day
  Sex: Female
  Weight: 61.2 kg

DRUGS (2)
  1. SEROQUEL [Suspect]
     Indication: PAIN MANAGEMENT
     Route: 048
     Dates: start: 20060104, end: 20060106
  2. SEROQUEL [Suspect]
     Route: 048

REACTIONS (10)
  - RHABDOMYOLYSIS [None]
  - PYREXIA [None]
  - RESPIRATORY FAILURE [None]
  - ILL-DEFINED DISORDER [None]
  - CONVULSION [None]
  - LEUKOCYTOSIS [None]
  - HYPOGLYCAEMIA [None]
  - NEUROLEPTIC MALIGNANT SYNDROME [None]
  - DRUG ABUSE [None]
  - LACTIC ACIDOSIS [None]
